FAERS Safety Report 12985947 (Version 2)
Quarter: 2017Q1

REPORT INFORMATION
  Report Type: Spontaneous
  Country: US (occurrence: US)
  Receive Date: 20161130
  Receipt Date: 20170109
  Transmission Date: 20170428
  Serious: Yes (Hospitalization)
  Sender: FDA-Public Use
  Company Number: US-BAYER-2016-218976

PATIENT
  Age: 67 Year
  Sex: Male
  Weight: 84.01 kg

DRUGS (30)
  1. XARELTO [Suspect]
     Active Substance: RIVAROXABAN
     Indication: CEREBROVASCULAR ACCIDENT PROPHYLAXIS
     Dosage: 20 MG, QD
     Route: 048
     Dates: start: 20140702, end: 20151009
  2. ACETYLSALICYLIC ACID({=100 MG) [Suspect]
     Active Substance: ASPIRIN
     Indication: CARDIOVASCULAR EVENT PROPHYLAXIS
     Dosage: UNK
     Dates: start: 20040615
  3. ANAGRELIDE [Suspect]
     Active Substance: ANAGRELIDE
     Indication: MYELOPROLIFERATIVE NEOPLASM
     Dosage: 0.5 MG, BID
     Route: 048
     Dates: start: 20141007, end: 20141020
  4. ANAGRELIDE [Suspect]
     Active Substance: ANAGRELIDE
     Indication: MYELOPROLIFERATIVE NEOPLASM
     Dosage: 0.5 MG, UNK
     Route: 048
     Dates: start: 20141217, end: 20141223
  5. PNEUMOCOCCAL VACCINE POLYVALENT NOS [Concomitant]
     Active Substance: PNEUMOCOCCAL VACCINE POLYVALENT
     Dosage: UNK
     Route: 065
  6. PANTOPRAZOLE [Concomitant]
     Active Substance: PANTOPRAZOLE SODIUM
     Dosage: UNK
     Route: 065
  7. ANAGRELIDE [Suspect]
     Active Substance: ANAGRELIDE
     Indication: MYELOPROLIFERATIVE NEOPLASM
     Dosage: 1.5 MG, BID
     Route: 048
     Dates: start: 20150304, end: 20150416
  8. CRESTOR [Concomitant]
     Active Substance: ROSUVASTATIN CALCIUM
     Indication: HYPERLIPIDAEMIA
     Dosage: UNK
     Route: 065
     Dates: start: 20140427, end: 20141002
  9. IRON [Concomitant]
     Active Substance: IRON
     Dosage: UNK
     Route: 065
     Dates: start: 20150910
  10. ANAGRELIDE [Suspect]
     Active Substance: ANAGRELIDE
     Indication: MYELOPROLIFERATIVE NEOPLASM
     Dosage: 1 MG, QD
     Route: 048
     Dates: start: 20141021, end: 20141104
  11. ANAGRELIDE [Suspect]
     Active Substance: ANAGRELIDE
     Indication: MYELOPROLIFERATIVE NEOPLASM
     Dosage: UNK
     Route: 048
     Dates: start: 20141202, end: 20141216
  12. MUCINEX [Concomitant]
     Active Substance: GUAIFENESIN
     Dosage: UNK
     Route: 065
     Dates: start: 20090615
  13. ANAGRELIDE [Suspect]
     Active Substance: ANAGRELIDE
     Indication: MYELOPROLIFERATIVE NEOPLASM
     Dosage: 0.5 MG, BID
     Route: 048
     Dates: start: 20141105, end: 20141124
  14. ANAGRELIDE [Suspect]
     Active Substance: ANAGRELIDE
     Indication: MYELOPROLIFERATIVE NEOPLASM
     Dosage: 1.5 MG, BID
     Route: 048
     Dates: start: 20150417, end: 20151009
  15. POTASSIUM CHLORIDE. [Concomitant]
     Active Substance: POTASSIUM CHLORIDE
     Dosage: UNK
     Route: 065
  16. XARELTO [Suspect]
     Active Substance: RIVAROXABAN
     Indication: ATRIAL FIBRILLATION
  17. ANAGRELIDE [Suspect]
     Active Substance: ANAGRELIDE
     Indication: MYELOPROLIFERATIVE NEOPLASM
     Dosage: 1 MG, BID
     Route: 048
     Dates: start: 20150204, end: 20150303
  18. DILTIAZEM HYDROCHLORIDE. [Concomitant]
     Active Substance: DILTIAZEM HYDROCHLORIDE
     Indication: HYPERTENSION
     Dosage: UNK
     Route: 065
     Dates: start: 20111212
  19. ANAGRELIDE [Suspect]
     Active Substance: ANAGRELIDE
     Indication: MYELOPROLIFERATIVE NEOPLASM
     Dosage: 0.5 MG, QD
     Route: 048
     Dates: start: 20141125, end: 20141201
  20. ANAGRELIDE [Suspect]
     Active Substance: ANAGRELIDE
     Indication: MYELOPROLIFERATIVE NEOPLASM
     Dosage: UNK
     Route: 048
     Dates: start: 20151011, end: 20151109
  21. IRBESARTAN. [Concomitant]
     Active Substance: IRBESARTAN
     Indication: HYPERTENSION
     Dosage: UNK
     Route: 065
     Dates: start: 20090601
  22. CYANOCOBALAMIN-TANNIN COMPLEX [Concomitant]
     Dosage: UNK
     Route: 065
  23. ANAGRELIDE [Suspect]
     Active Substance: ANAGRELIDE
     Indication: MYELOPROLIFERATIVE NEOPLASM
     Dosage: 1 MG, BID
     Route: 048
     Dates: start: 20151110, end: 20160307
  24. LEVOTHYROXINE SODIUM. [Concomitant]
     Active Substance: LEVOTHYROXINE SODIUM
     Indication: HYPOTHYROIDISM
     Dosage: UNK
     Route: 065
     Dates: start: 20000615
  25. SENNA [Concomitant]
     Active Substance: SENNA LEAF\SENNOSIDES\SENNOSIDES A AND B
     Dosage: UNK
     Route: 065
     Dates: start: 20141202
  26. DOCUSATE SODIUM. [Concomitant]
     Active Substance: DOCUSATE SODIUM
     Dosage: UNK
     Route: 065
  27. GUAIFENESIN. [Concomitant]
     Active Substance: GUAIFENESIN
     Indication: COUGH
     Dosage: UNK
     Route: 065
  28. ANAGRELIDE [Suspect]
     Active Substance: ANAGRELIDE
     Indication: MYELOPROLIFERATIVE NEOPLASM
     Dosage: 0.5 MG, QD
     Route: 048
     Dates: start: 20141224, end: 20150203
  29. FERROUS SULFATE. [Concomitant]
     Active Substance: FERROUS SULFATE
     Dosage: UNK
     Route: 065
     Dates: start: 20141217
  30. IRBESARTAN. [Concomitant]
     Active Substance: IRBESARTAN
     Indication: HYPERTENSION
     Dosage: UNK
     Route: 065
     Dates: start: 20141222

REACTIONS (1)
  - Epistaxis [Recovering/Resolving]

NARRATIVE: CASE EVENT DATE: 20151009
